FAERS Safety Report 8383365-8 (Version None)
Quarter: 2012Q2

REPORT INFORMATION
  Report Type: 
  Country: None (occurrence: None)
  Receive Date: 20120524
  Receipt Date: 20120514
  Transmission Date: 20120825
  Serious: Yes (Other)
  Sender: FDA-Public Use
  Company Number: US-ABBOTT-12P-163-0935402-00

PATIENT
  Age: 44 Year
  Sex: Female

DRUGS (5)
  1. REYATAZ [Concomitant]
     Indication: HIV INFECTION
     Route: 048
     Dates: end: 20120229
  2. NORVIR [Concomitant]
     Indication: MATERNAL EXPOSURE TIMING UNSPECIFIED
     Route: 064
  3. KALETRA [Suspect]
     Indication: HIV INFECTION
     Route: 048
     Dates: start: 20110517, end: 20110809
  4. REYATAZ [Concomitant]
     Route: 048
     Dates: start: 20120229
  5. COMBIVIR [Concomitant]
     Indication: HIV INFECTION
     Route: 048

REACTIONS (1)
  - DRUG INTOLERANCE [None]
